FAERS Safety Report 8822414 (Version 4)
Quarter: 2013Q1

REPORT INFORMATION
  Report Type: Spontaneous
  Country: JP (occurrence: JP)
  Receive Date: 20121003
  Receipt Date: 20130109
  Transmission Date: 20140127
  Serious: Yes (Hospitalization, Disabling)
  Sender: FDA-Public Use
  Company Number: JP-JNJFOC-20101005118

PATIENT
  Age: 70 Year
  Sex: Male
  Weight: 55.8 kg

DRUGS (15)
  1. LOPEMIN [Suspect]
     Indication: DIARRHOEA
     Dosage: 2 CAPSULES/DAY
     Route: 048
     Dates: start: 20100829, end: 20100830
  2. LOPEMIN [Suspect]
     Indication: DIARRHOEA
     Dosage: 1 CAPSULE/DAY
     Route: 048
     Dates: start: 20100826, end: 20100828
  3. ITRIZOLE [Interacting]
     Indication: ANTIFUNGAL PROPHYLAXIS
     Route: 048
     Dates: start: 20100817, end: 20100831
  4. VELCADE [Suspect]
     Indication: PLASMA CELL MYELOMA
     Dosage: DAYS 1, 4, 8, AND 11
     Route: 042
     Dates: start: 20100817, end: 20100827
  5. TANNALBIN [Suspect]
     Indication: DIARRHOEA
     Route: 048
     Dates: start: 20100829, end: 20100830
  6. DECADRON [Suspect]
     Indication: PLASMA CELL MYELOMA
     Route: 048
     Dates: start: 20100824, end: 20100825
  7. DECADRON [Suspect]
     Indication: PLASMA CELL MYELOMA
     Route: 048
     Dates: start: 20100820, end: 20100821
  8. DECADRON [Suspect]
     Indication: PLASMA CELL MYELOMA
     Dosage: (DAYS 1, 2, 4, 5, 8, 9, 11, AND 12)
     Route: 048
     Dates: start: 20100817, end: 20100818
  9. DECADRON [Suspect]
     Indication: PLASMA CELL MYELOMA
     Route: 048
     Dates: start: 20100827, end: 20100828
  10. BAKTAR [Suspect]
     Indication: ANTIFUNGAL PROPHYLAXIS
     Route: 048
     Dates: start: 20100817, end: 20100903
  11. BLOPRESS [Concomitant]
     Indication: HYPERTENSION
     Route: 048
     Dates: start: 20100830
  12. FUNGUARD [Concomitant]
     Indication: FUNGAL INFECTION
     Route: 041
     Dates: start: 20100918, end: 20100921
  13. DIFLUCAN [Concomitant]
     Indication: ANTIFUNGAL PROPHYLAXIS
     Route: 048
     Dates: start: 20100901, end: 20100913
  14. DIFLUCAN [Concomitant]
     Indication: ANTIFUNGAL PROPHYLAXIS
     Route: 048
     Dates: start: 20100914, end: 20100918
  15. DIFLUCAN [Concomitant]
     Indication: ANTIFUNGAL PROPHYLAXIS
     Route: 048
     Dates: start: 20100922, end: 20100928

REACTIONS (10)
  - Herpes simplex [Recovered/Resolved]
  - Ureteric rupture [Not Recovered/Not Resolved]
  - Deep vein thrombosis [Recovering/Resolving]
  - Ileus paralytic [Recovered/Resolved]
  - Neurogenic bladder [Not Recovered/Not Resolved]
  - Drug interaction [Unknown]
  - Platelet count decreased [Recovered/Resolved]
  - Cytomegalovirus infection [Recovered/Resolved]
  - Neuropathy peripheral [Not Recovered/Not Resolved]
  - Hypoaesthesia [Recovering/Resolving]
